FAERS Safety Report 13726979 (Version 7)
Quarter: 2019Q1

REPORT INFORMATION
  Report Type: Spontaneous
  Country: US (occurrence: US)
  Receive Date: 20170706
  Receipt Date: 20190315
  Transmission Date: 20190417
  Serious: No
  Sender: FDA-Public Use
  Company Number: US-PFIZER INC-2017291580

PATIENT
  Age: 71 Year
  Sex: Female
  Weight: 102.4 kg

DRUGS (8)
  1. SOMAVERT [Suspect]
     Active Substance: PEGVISOMANT
     Dosage: 20 MG, DAILY
     Route: 058
  2. SOMAVERT [Suspect]
     Active Substance: PEGVISOMANT
     Indication: ACROMEGALY
     Dosage: 20 MG, DAILY
     Route: 058
  3. SOMAVERT [Suspect]
     Active Substance: PEGVISOMANT
     Dosage: UNK
  4. LANTUS [Concomitant]
     Active Substance: INSULIN GLARGINE
     Indication: DIABETES MELLITUS
     Dosage: 40 IU, 2X/DAY
  5. NOVOLOG [Concomitant]
     Active Substance: INSULIN ASPART
     Indication: DIABETES MELLITUS
     Dosage: 20 IU, 3X/DAY
  6. INSULIN [Concomitant]
     Active Substance: INSULIN NOS
     Dosage: UNK
  7. SOMAVERT [Suspect]
     Active Substance: PEGVISOMANT
     Indication: PITUITARY ENLARGEMENT
     Dosage: 20 MG, DAILY
     Route: 058
     Dates: end: 20180518
  8. SANDOSTATIN LAR DEPOT [Concomitant]
     Active Substance: OCTREOTIDE ACETATE
     Dosage: UNK

REACTIONS (27)
  - Headache [Unknown]
  - Thirst [Unknown]
  - Alanine aminotransferase increased [Unknown]
  - Injection site induration [Unknown]
  - Urine albumin/creatinine ratio increased [Unknown]
  - Blood glucose increased [Unknown]
  - Insulin-like growth factor increased [Unknown]
  - Fatigue [Unknown]
  - Dysphagia [Unknown]
  - Enuresis [Unknown]
  - Disease recurrence [Unknown]
  - Blood urea nitrogen/creatinine ratio increased [Unknown]
  - Palpitations [Unknown]
  - Hyperphagia [Unknown]
  - Glycosylated haemoglobin increased [Unknown]
  - Visual impairment [Unknown]
  - Appetite disorder [Unknown]
  - Bone density increased [Unknown]
  - Dizziness [Unknown]
  - Night sweats [Unknown]
  - Pain [Unknown]
  - Oedema [Unknown]
  - Libido decreased [Unknown]
  - Muscle spasms [Unknown]
  - Dry skin [Unknown]
  - Blood cholesterol increased [Unknown]
  - Balance disorder [Unknown]

NARRATIVE: CASE EVENT DATE: 20170822
